FAERS Safety Report 6689350-6 (Version None)
Quarter: 2010Q2

REPORT INFORMATION
  Report Type: 
  Country: None (occurrence: None)
  Receive Date: 20100419
  Receipt Date: 20100419
  Transmission Date: 20101027
  Serious: Yes (Life-Threatening, Other)
  Sender: FDA-Public Use
  Company Number: None

PATIENT
  Age: 37 Year
  Sex: Female
  Weight: 103.8737 kg

DRUGS (1)
  1. TOPIRAMATE [Suspect]
     Indication: EPILEPSY
     Dosage: 25MG 4 TWICE A DAY PO
     Route: 048
     Dates: start: 20091210, end: 20100413

REACTIONS (15)
  - APPARENT LIFE THREATENING EVENT [None]
  - AURA [None]
  - CONVULSION [None]
  - DRUG EFFECT DECREASED [None]
  - FEAR [None]
  - FEELING ABNORMAL [None]
  - GRAND MAL CONVULSION [None]
  - HEADACHE [None]
  - IMPAIRED DRIVING ABILITY [None]
  - MALAISE [None]
  - NAUSEA [None]
  - PETIT MAL EPILEPSY [None]
  - PRODUCT QUALITY ISSUE [None]
  - PRODUCT SUBSTITUTION ISSUE [None]
  - SOMNOLENCE [None]
